FAERS Safety Report 15036694 (Version 1)
Quarter: 2018Q2

REPORT INFORMATION
  Report Type: Spontaneous
  Country: None (occurrence: MZ)
  Receive Date: 20180620
  Receipt Date: 20180620
  Transmission Date: 20180711
  Serious: Yes (Other)
  Sender: FDA-Public Use
  Company Number: MZ-POPULATION COUNCIL, INC.-2049701

PATIENT
  Age: 34 Year
  Sex: Female
  Weight: 56 kg

DRUGS (1)
  1. JADELLE [Suspect]
     Active Substance: LEVONORGESTREL
     Dates: start: 20171102

REACTIONS (2)
  - Drug ineffective [None]
  - Pregnancy with implant contraceptive [Not Recovered/Not Resolved]
